FAERS Safety Report 6259796-9 (Version None)
Quarter: 2009Q3

REPORT INFORMATION
  Report Type: 
  Country: None (occurrence: None)
  Receive Date: 20090708
  Receipt Date: 20090630
  Transmission Date: 20100115
  Serious: Yes (Other)
  Sender: FDA-Public Use
  Company Number: US-AMGEN-QUU352739

PATIENT
  Sex: Female
  Weight: 74 kg

DRUGS (2)
  1. ENBREL [Suspect]
     Indication: RHEUMATOID ARTHRITIS
     Route: 058
     Dates: start: 20080625
  2. METHOTREXATE [Concomitant]
     Route: 048

REACTIONS (1)
  - PRECANCEROUS SKIN LESION [None]
